FAERS Safety Report 4498031-9 (Version None)
Quarter: 2004Q4

REPORT INFORMATION
  Report Type: 
  Country: None (occurrence: None)
  Receive Date: 20041109
  Receipt Date: 20041109
  Transmission Date: 20050328
  Serious: Yes (Life-Threatening, Hospitalization)
  Sender: FDA-Public Use
  Company Number: None

PATIENT
  Age: 60 Year
  Sex: Female
  Weight: 60.3284 kg

DRUGS (1)
  1. VIOXX [Suspect]
     Indication: RHEUMATOID ARTHRITIS
     Dosage: 1 TABLET TWICE DAILY ORAL
     Route: 048
     Dates: start: 20000220, end: 20040930

REACTIONS (3)
  - BLOOD PRESSURE INCREASED [None]
  - TRANSIENT ISCHAEMIC ATTACK [None]
  - TREMOR [None]
